FAERS Safety Report 15516329 (Version 1)
Quarter: 2018Q4

REPORT INFORMATION
  Report Type: Spontaneous
  Country: US (occurrence: US)
  Receive Date: 20181017
  Receipt Date: 20181017
  Transmission Date: 20190205
  Serious: Yes (Disabling, Other)
  Sender: FDA-Public Use
  Company Number: None

PATIENT
  Age: 52 Year
  Sex: Female
  Weight: 56.25 kg

DRUGS (4)
  1. DIVIGEL [Suspect]
     Active Substance: ESTRADIOL
     Indication: HOT FLUSH
     Dosage: ?          QUANTITY:1 DROP(S);?
     Route: 061
     Dates: start: 20180701, end: 20180702
  2. DIVIGEL [Suspect]
     Active Substance: ESTRADIOL
     Indication: MENOPAUSE
     Dosage: ?          QUANTITY:1 DROP(S);?
     Route: 061
     Dates: start: 20180701, end: 20180702
  3. ESTRADIOL TRANSDERMAL SYSTEM [Suspect]
     Active Substance: ESTRADIOL
     Indication: HOT FLUSH
     Dosage: ?          QUANTITY:1 PATCH(ES);OTHER FREQUENCY:TWICE A WEEK;?
     Route: 062
     Dates: start: 20180801, end: 20181015
  4. ESTRADIOL TRANSDERMAL SYSTEM [Suspect]
     Active Substance: ESTRADIOL
     Indication: MENOPAUSE
     Dosage: ?          QUANTITY:1 PATCH(ES);OTHER FREQUENCY:TWICE A WEEK;?
     Route: 062
     Dates: start: 20180801, end: 20181015

REACTIONS (2)
  - Anaphylactic reaction [None]
  - Dermatitis [None]

NARRATIVE: CASE EVENT DATE: 20181015
